FAERS Safety Report 11873357 (Version 3)
Quarter: 2016Q3

REPORT INFORMATION
  Report Type: Spontaneous
  Country: IT (occurrence: IT)
  Receive Date: 20151228
  Receipt Date: 20160726
  Transmission Date: 20161109
  Serious: Yes (Other)
  Sender: FDA-Public Use
  Company Number: IT-TEVA-619876ACC

PATIENT
  Age: 82 Year
  Sex: Female

DRUGS (1)
  1. MIRTAZAPINE. [Suspect]
     Active Substance: MIRTAZAPINE
     Indication: PSYCHOMOTOR HYPERACTIVITY
     Dosage: 15 MILLIGRAM DAILY;
     Route: 048
     Dates: start: 20151207, end: 20151210

REACTIONS (6)
  - Hypertension [Unknown]
  - Dry mouth [Unknown]
  - Cough [Unknown]
  - Malaise [Unknown]
  - Confusional state [Unknown]
  - Asthenia [Unknown]

NARRATIVE: CASE EVENT DATE: 20151207
